FAERS Safety Report 9870704 (Version 1)
Quarter: 2014Q1

REPORT INFORMATION
  Report Type: Spontaneous
  Country: IT (occurrence: IT)
  Receive Date: 20140205
  Receipt Date: 20140205
  Transmission Date: 20141002
  Serious: Yes (Other)
  Sender: FDA-Public Use
  Company Number: IT-ROCHE-1341557

PATIENT
  Age: 49 Year
  Sex: Female
  Weight: 64 kg

DRUGS (3)
  1. ZELBORAF [Suspect]
     Indication: METASTATIC MALIGNANT MELANOMA
     Route: 048
     Dates: start: 20131106
  2. SOLDESAM [Concomitant]
  3. ZYLORIC [Concomitant]
     Route: 048

REACTIONS (1)
  - Activated partial thromboplastin time prolonged [Recovered/Resolved]
